FAERS Safety Report 22028947 (Version 1)
Quarter: 2023Q1

REPORT INFORMATION
  Report Type: Spontaneous
  Country: CN (occurrence: CN)
  Receive Date: 20230223
  Receipt Date: 20230223
  Transmission Date: 20230418
  Serious: No
  Sender: FDA-Public Use
  Company Number: CN-PFIZER INC-PV202300032613

PATIENT
  Age: 82 Year
  Sex: Male
  Weight: 75 kg

DRUGS (4)
  1. PAXLOVID [Suspect]
     Active Substance: NIRMATRELVIR\RITONAVIR
     Indication: Therapeutic procedure
     Dosage: [PF-07321332 300 MG]/[RITONAVIR 100 MG]; 2X/DAY
     Route: 048
     Dates: start: 20230117, end: 20230119
  2. CEFTAZIDIME [Concomitant]
     Active Substance: CEFTAZIDIME
     Indication: Therapeutic procedure
     Dosage: 1 G, 3X/DAY
     Route: 041
     Dates: start: 20230116, end: 20230119
  3. METFORMIN [Concomitant]
     Active Substance: METFORMIN HYDROCHLORIDE
     Indication: Symptomatic treatment
     Dosage: 0.5 G, 2X/DAY
     Route: 048
     Dates: start: 20230116, end: 20230118
  4. GLUCOBAY [Concomitant]
     Active Substance: ACARBOSE
     Indication: Symptomatic treatment
     Dosage: 50 MG, 3X/DAY
     Route: 048
     Dates: start: 20230117, end: 20230119

REACTIONS (2)
  - Diarrhoea [Recovering/Resolving]
  - Incorrect product administration duration [Unknown]

NARRATIVE: CASE EVENT DATE: 20230117
